FAERS Safety Report 8187810-2 (Version None)
Quarter: 2012Q1

REPORT INFORMATION
  Report Type: 
  Country: None (occurrence: None)
  Receive Date: 20120306
  Receipt Date: 20120224
  Transmission Date: 20120608
  Serious: Yes (Hospitalization)
  Sender: FDA-Public Use
  Company Number: BR-ROCHE-1029721

PATIENT
  Sex: Female
  Weight: 53 kg

DRUGS (10)
  1. VENLIFT [Concomitant]
  2. PREDNISONE TAB [Concomitant]
  3. ARCALION [Concomitant]
  4. CLONAZEPAM [Concomitant]
  5. LEVOFLOXACIN [Concomitant]
  6. DIMETICONE [Concomitant]
  7. MABTHERA [Suspect]
     Indication: SYSTEMIC LUPUS ERYTHEMATOSUS
     Route: 042
     Dates: start: 20100916, end: 20110217
  8. OMEPRAZOLE [Concomitant]
  9. TANDRILAX [Concomitant]
  10. CLARITHROMYCIN [Concomitant]

REACTIONS (9)
  - CHEST PAIN [None]
  - LOCALISED INFECTION [None]
  - NERVOUSNESS [None]
  - HEADACHE [None]
  - MALAISE [None]
  - LIMB INJURY [None]
  - DYSPNOEA [None]
  - PAIN IN EXTREMITY [None]
  - LUNG INFECTION [None]
